FAERS Safety Report 7645090-8 (Version None)
Quarter: 2011Q3

REPORT INFORMATION
  Report Type: 
  Country: None (occurrence: None)
  Receive Date: 20110725
  Receipt Date: 20110714
  Transmission Date: 20111222
  Serious: Yes (Other)
  Sender: FDA-Public Use
  Company Number: 2011-00755

PATIENT
  Sex: Male

DRUGS (1)
  1. CEFUROXIME AXETIL [Suspect]
     Indication: PRODUCT USED FOR UNKNOWN INDICATION
     Dosage: 250 MG,

REACTIONS (2)
  - LYME DISEASE [None]
  - DISEASE RECURRENCE [None]
